FAERS Safety Report 22274305 (Version 1)
Quarter: 2023Q2

REPORT INFORMATION
  Report Type: Spontaneous
  Country: US (occurrence: US)
  Receive Date: 20230502
  Receipt Date: 20230502
  Transmission Date: 20230722
  Serious: No
  Sender: FDA-Public Use
  Company Number: US-AMNEAL PHARMACEUTICALS-2023-AMRX-00269

PATIENT
  Sex: Female

DRUGS (1)
  1. VIGABATRIN [Suspect]
     Active Substance: VIGABATRIN
     Indication: Lennox-Gastaut syndrome
     Dosage: MIX 3 PACKETS IN 30 ML OF WATER AND GIVE/TAKE 28 ML (1400 MG TOTAL), 2 /DAY
     Route: 048

REACTIONS (2)
  - Syringe issue [Unknown]
  - No adverse event [Unknown]
